FAERS Safety Report 7276533-X (Version None)
Quarter: 2011Q1

REPORT INFORMATION
  Report Type: 
  Country: None (occurrence: None)
  Receive Date: 20110204
  Receipt Date: 20110124
  Transmission Date: 20110831
  Serious: Yes (Other)
  Sender: FDA-Public Use
  Company Number: GB-GENENTECH-308797

PATIENT

DRUGS (5)
  1. NPLATE [Suspect]
     Indication: IDIOPATHIC THROMBOCYTOPENIC PURPURA
     Dosage: 100 A?G, 1/WEEK
     Route: 058
     Dates: start: 20100514
  2. RITUXIMAB [Suspect]
     Indication: IDIOPATHIC THROMBOCYTOPENIC PURPURA
     Dosage: 700 MG, 1/MONTH
     Route: 042
     Dates: start: 20100512, end: 20100823
  3. IMMUNE GLOBULIN NOS [Concomitant]
     Indication: IDIOPATHIC THROMBOCYTOPENIC PURPURA
     Dosage: 80 MG, UNK
     Route: 042
  4. NPLATE [Suspect]
     Dosage: 250 A?G, 1/WEEK
     Route: 058
     Dates: start: 20100528, end: 20100716
  5. NPLATE [Suspect]
     Dosage: 200 A?G, 1/WEEK
     Route: 058

REACTIONS (1)
  - ALVEOLITIS [None]
